FAERS Safety Report 4610804-8 (Version None)
Quarter: 2005Q2

REPORT INFORMATION
  Report Type: 
  Country: None (occurrence: None)
  Receive Date: 20050223
  Receipt Date: 20040204
  Transmission Date: 20051028
  Serious: Yes (Hospitalization, Disabling)
  Sender: FDA-Public Use
  Company Number: WAES 0402USA00391

PATIENT
  Age: 61 Year
  Sex: Female

DRUGS (11)
  1. ZOCOR [Suspect]
     Indication: BLOOD CHOLESTEROL INCREASED
     Dosage: 40 MG DAILY PO, 20 MG DAILY PO
     Route: 048
     Dates: end: 20040204
  2. COREG [Concomitant]
  3. COUMADIN [Concomitant]
  4. DIOVAN [Concomitant]
  5. PREVACID [Concomitant]
  6. BACLOFEN [Concomitant]
  7. DIGOXIN [Concomitant]
  8. FUROSEMIDE [Concomitant]
  9. GLYBURIDE [Concomitant]
  10. OXYCODONE HCL [Concomitant]
  11. SPIRONOLACTONE [Concomitant]

REACTIONS (2)
  - DYSPNOEA [None]
  - MUSCLE SPASMS [None]
